FAERS Safety Report 5971443-X (Version None)
Quarter: 2008Q4

REPORT INFORMATION
  Report Type: 
  Country: None (occurrence: None)
  Receive Date: 20081201
  Receipt Date: 20081118
  Transmission Date: 20090506
  Serious: Yes (Other)
  Sender: FDA-Public Use
  Company Number: GB-JNJFOC-20081104693

PATIENT
  Age: 34 Year
  Sex: Female
  Weight: 51 kg

DRUGS (4)
  1. REMICADE [Suspect]
     Indication: COLITIS ULCERATIVE
     Route: 042
  2. HYDROCORTISONE [Concomitant]
     Indication: COLITIS ULCERATIVE
  3. MESALAMINE [Concomitant]
     Indication: COLITIS ULCERATIVE
  4. PREDNISOLONE [Concomitant]
     Indication: COLITIS ULCERATIVE

REACTIONS (2)
  - DRUG EXPOSURE DURING PREGNANCY [None]
  - INTRA-UTERINE DEATH [None]
